FAERS Safety Report 8609674-2 (Version None)
Quarter: 2012Q3

REPORT INFORMATION
  Report Type: 
  Country: None (occurrence: None)
  Receive Date: 20120821
  Receipt Date: 20120717
  Transmission Date: 20120928
  Serious: Yes (Disabling, Other)
  Sender: FDA-Public Use
  Company Number: US-009507513-1103USA00946

PATIENT

DRUGS (8)
  1. CALCIUM (UNSPECIFIED) (+) VITAMIN D (UNSPECIFIED) [Concomitant]
     Dosage: 500 MG, BID
     Dates: start: 20000101
  2. CHONDROITIN SULFATE SODIUM (+) GLUCOSAMINE SULFATE [Concomitant]
     Dosage: 1300 MG, BID
     Dates: start: 20000101
  3. FOSAMAX [Suspect]
     Indication: OSTEOPOROSIS
     Dosage: 70 MG, UNK
     Route: 048
     Dates: start: 20041203, end: 20080428
  4. ALENDRONATE SODIUM [Suspect]
     Indication: OSTEOPOROSIS
     Dosage: 70 MG, UNK
     Route: 048
     Dates: start: 20080428, end: 20100905
  5. OMEGA-3-ACID ETHYL ESTERS [Concomitant]
     Dosage: 1000 MG, BID
     Dates: start: 20000101
  6. ALTACE [Concomitant]
     Indication: HYPERTENSION
     Dosage: 5 MG, QD
     Dates: start: 20020101
  7. VITAMIN D [Concomitant]
     Dosage: 1000 MG, QD
     Dates: start: 20000101
  8. FLAXSEED [Concomitant]
     Dosage: 1000 MG, QD
     Dates: start: 20000101

REACTIONS (4)
  - STRESS FRACTURE [None]
  - FEMUR FRACTURE [None]
  - OSTEOPOROSIS [None]
  - LOW TURNOVER OSTEOPATHY [None]
